FAERS Safety Report 20874519 (Version 3)
Quarter: 2022Q2

REPORT INFORMATION
  Report Type: Report from Study
  Country: US (occurrence: US)
  Receive Date: 20220525
  Receipt Date: 20220531
  Transmission Date: 20220721
  Serious: No
  Sender: FDA-Public Use
  Company Number: US-NOVARTISTESTPH-NVSC2022US120467

PATIENT
  Sex: Male

DRUGS (1)
  1. OMNITROPE [Suspect]
     Active Substance: SOMATROPIN
     Indication: Hypopituitarism
     Dosage: 0.40 ML
     Route: 058
     Dates: start: 20220404

REACTIONS (4)
  - Nausea [Unknown]
  - Vomiting [Unknown]
  - Adverse drug reaction [Unknown]
  - Injection site bruising [Unknown]
